FAERS Safety Report 4992266-4 (Version None)
Quarter: 2006Q2

REPORT INFORMATION
  Report Type: 
  Country: None (occurrence: None)
  Receive Date: 20060504
  Receipt Date: 20060424
  Transmission Date: 20061013
  Serious: Yes (Hospitalization)
  Sender: FDA-Public Use
  Company Number: US-ROCHE-445754

PATIENT
  Age: 46 Year
  Sex: Female

DRUGS (2)
  1. PEGASYS [Suspect]
     Route: 065
     Dates: start: 20051115
  2. COPEGUS [Suspect]
     Route: 048
     Dates: start: 20051115

REACTIONS (6)
  - ANAEMIA [None]
  - CHAPPED LIPS [None]
  - ORAL CANDIDIASIS [None]
  - ORAL PUSTULE [None]
  - PLEURISY [None]
  - PNEUMONIA [None]
